FAERS Safety Report 18259696 (Version 1)
Quarter: 2020Q3

REPORT INFORMATION
  Report Type: Spontaneous
  Country: US (occurrence: US)
  Receive Date: 20200912
  Receipt Date: 20200912
  Transmission Date: 20201103
  Serious: No
  Sender: FDA-Public Use
  Company Number: US-ASTRAZENECA-2020SF10820

PATIENT
  Sex: Female

DRUGS (2)
  1. ORAL STEROIDS [Concomitant]
     Active Substance: UNSPECIFIED INGREDIENT
  2. FASENRA [Suspect]
     Active Substance: BENRALIZUMAB
     Indication: ASTHMA
     Dosage: 30.0MG UNKNOWN
     Route: 058

REACTIONS (4)
  - Muscle spasms [Recovering/Resolving]
  - Weight increased [Recovering/Resolving]
  - Weight decreased [Unknown]
  - Condition aggravated [Unknown]
